FAERS Safety Report 16095350 (Version 1)
Quarter: 2019Q1

REPORT INFORMATION
  Report Type: Other
  Country: CA (occurrence: CA)
  Receive Date: 20190320
  Receipt Date: 20190320
  Transmission Date: 20190418
  Serious: Yes (Other)
  Sender: FDA-Public Use
  Company Number: CA-BECTON DICKINSON-2019BDN00105

PATIENT

DRUGS (20)
  1. CIMZIA [Suspect]
     Active Substance: CERTOLIZUMAB PEGOL
     Dosage: 400 MG
     Route: 058
  2. ACTEMRA [Suspect]
     Active Substance: TOCILIZUMAB
  3. ETANERCEPT [Suspect]
     Active Substance: ETANERCEPT
  4. DESOGESTREL/ETHINYL ESTRADIOL [Concomitant]
     Active Substance: DESOGESTREL\ETHINYL ESTRADIOL
  5. OXYCODONE [Suspect]
     Active Substance: OXYCODONE
  6. METHOTREXATE. [Suspect]
     Active Substance: METHOTREXATE
  7. CHLORHEXIDINE [Suspect]
     Active Substance: CHLORHEXIDINE
  8. ACETAMINOPHEN. [Suspect]
     Active Substance: ACETAMINOPHEN
  9. SIMPONI [Suspect]
     Active Substance: GOLIMUMAB
     Route: 058
  10. PANTOPRAZOLE [Concomitant]
     Active Substance: PANTOPRAZOLE
  11. SALBUTAMOL [Concomitant]
     Active Substance: ALBUTEROL
  12. VITAMIN C [Concomitant]
     Active Substance: ASCORBIC ACID
  13. ERGOCALCIFEROL. [Concomitant]
     Active Substance: ERGOCALCIFEROL
  14. PREDNISONE. [Concomitant]
     Active Substance: PREDNISONE
  15. LEFLUNOMIDE. [Suspect]
     Active Substance: LEFLUNOMIDE
  16. IBUPROFEN. [Concomitant]
     Active Substance: IBUPROFEN
  17. ORENCIA [Suspect]
     Active Substance: ABATACEPT
  18. HYDROXYCHLOROQUINE [Concomitant]
     Active Substance: HYDROXYCHLOROQUINE
  19. ZOPICLONE [Concomitant]
     Active Substance: ZOPICLONE
  20. REACTINE [CETIRIZINE HYDROCHLORIDE] [Concomitant]
     Active Substance: CETIRIZINE HYDROCHLORIDE

REACTIONS (20)
  - Asthenia [Unknown]
  - Back pain [Unknown]
  - Night sweats [Unknown]
  - Lower respiratory tract infection [Unknown]
  - Pruritus generalised [Unknown]
  - Diarrhoea [Unknown]
  - Ear pain [Unknown]
  - Sinusitis [Unknown]
  - Joint swelling [Unknown]
  - Body temperature increased [Unknown]
  - Muscle spasticity [Unknown]
  - Peripheral swelling [Unknown]
  - Vomiting [Unknown]
  - Headache [Unknown]
  - Pain [Unknown]
  - Urticaria [Unknown]
  - Abdominal pain [Unknown]
  - Insomnia [Unknown]
  - Rash [Unknown]
  - Respiratory disorder [Unknown]
